FAERS Safety Report 8128188-X (Version None)
Quarter: 2011Q4

REPORT INFORMATION
  Report Type: 
  Country: None (occurrence: None)
  Receive Date: 20111228
  Receipt Date: 20110322
  Transmission Date: 20120403
  Serious: Yes (Hospitalization)
  Sender: FDA-Public Use
  Company Number: WAES 1103USA03175

PATIENT
  Age: 70 Year
  Sex: Female
  Weight: 63.05 kg

DRUGS (5)
  1. ZETIA [Suspect]
     Indication: DYSLIPIDAEMIA
     Dosage: PO
     Route: 048
     Dates: start: 20060101, end: 20110301
  2. VICODIN [Concomitant]
  3. CYMBALTA [Concomitant]
  4. REQUIP [Concomitant]
  5. XANAX [Concomitant]

REACTIONS (1)
  - PANCREATITIS [None]
